FAERS Safety Report 6749441-8 (Version None)
Quarter: 2010Q2

REPORT INFORMATION
  Report Type: 
  Country: None (occurrence: None)
  Receive Date: 20100601
  Receipt Date: 20100517
  Transmission Date: 20101027
  Serious: Yes (Hospitalization, Other)
  Sender: FDA-Public Use
  Company Number: US-ASTRAZENECA-2009SE17593

PATIENT
  Sex: Female

DRUGS (9)
  1. SEROQUEL [Suspect]
     Route: 048
     Dates: start: 20050203
  2. RESTORIL [Concomitant]
  3. LOTREL [Concomitant]
  4. EXELON [Concomitant]
  5. NITROGLYCERIN [Concomitant]
     Route: 048
  6. ZANTAC [Concomitant]
  7. ALLEGRA [Concomitant]
  8. CLONIDINE [Concomitant]
     Dosage: PRN
  9. ZOCOR [Concomitant]

REACTIONS (2)
  - DIABETES WITH HYPEROSMOLARITY [None]
  - DIABETIC COMPLICATION [None]
